FAERS Safety Report 6693751-X (Version None)
Quarter: 2010Q2

REPORT INFORMATION
  Report Type: 
  Country: None (occurrence: None)
  Receive Date: 20100423
  Receipt Date: 20090901
  Transmission Date: 20101027
  Serious: No
  Sender: FDA-Public Use
  Company Number: A0806016A

PATIENT
  Sex: Female

DRUGS (1)
  1. DEXTROAMPETAMINE SULFATE TAB [Suspect]
     Indication: NEUROLOGICAL SYMPTOM
     Route: 048

REACTIONS (1)
  - DRUG EFFECT DECREASED [None]
